FAERS Safety Report 7288449-3 (Version None)
Quarter: 2011Q1

REPORT INFORMATION
  Report Type: 
  Country: None (occurrence: None)
  Receive Date: 20110211
  Receipt Date: 20110203
  Transmission Date: 20110831
  Serious: Yes (Hospitalization, Other)
  Sender: FDA-Public Use
  Company Number: B0662783A

PATIENT
  Sex: Female

DRUGS (3)
  1. LENDORMIN [Concomitant]
     Route: 048
  2. PAXIL [Suspect]
     Indication: DEPRESSION
     Dosage: 10MG PER DAY
     Route: 048
     Dates: start: 20091127, end: 20100508
  3. RESLIN [Concomitant]
     Dosage: 25MG PER DAY
     Route: 048

REACTIONS (7)
  - BLOOD SODIUM DECREASED [None]
  - BLOOD CHLORIDE DECREASED [None]
  - BLOOD GLUCOSE INCREASED [None]
  - CONVULSION [None]
  - INAPPROPRIATE ANTIDIURETIC HORMONE SECRETION [None]
  - HYPONATRAEMIA [None]
  - URINE OSMOLARITY DECREASED [None]
